FAERS Safety Report 13844201 (Version 2)
Quarter: 2017Q3

REPORT INFORMATION
  Report Type: Spontaneous
  Country: US (occurrence: US)
  Receive Date: 20170808
  Receipt Date: 20170915
  Transmission Date: 20171127
  Serious: No
  Sender: FDA-Public Use
  Company Number: US-PFIZER INC-2017341047

PATIENT
  Age: 34 Year
  Sex: Male

DRUGS (1)
  1. ZOLOFT [Suspect]
     Active Substance: SERTRALINE HYDROCHLORIDE
     Indication: HYPOTHYROIDISM
     Dosage: UNK

REACTIONS (3)
  - Fatigue [Unknown]
  - Panic attack [Unknown]
  - Heart rate increased [Unknown]
